FAERS Safety Report 10472919 (Version 2)
Quarter: 2014Q3

REPORT INFORMATION
  Report Type: Spontaneous
  Country: PL (occurrence: PL)
  Receive Date: 20140924
  Receipt Date: 20140929
  Transmission Date: 20150326
  Serious: Yes (Hospitalization)
  Sender: FDA-Public Use
  Company Number: PHHY2014PL119702

PATIENT
  Age: 17 Year
  Sex: Male
  Weight: 100 kg

DRUGS (1)
  1. EXJADE [Suspect]
     Active Substance: DEFERASIROX
     Indication: IRON OVERLOAD
     Dosage: 1500 MG, QD
     Route: 048
     Dates: start: 20140808, end: 20140909

REACTIONS (6)
  - Nephropathy toxic [Unknown]
  - Blood creatinine increased [Unknown]
  - Vomiting [Unknown]
  - Metabolic acidosis [Unknown]
  - Abdominal pain upper [Unknown]
  - Headache [Unknown]

NARRATIVE: CASE EVENT DATE: 20140904
